FAERS Safety Report 4581366-9 (Version None)
Quarter: 2005Q1

REPORT INFORMATION
  Report Type: 
  Country: None (occurrence: None)
  Receive Date: 20050214
  Receipt Date: 20041006
  Transmission Date: 20050727
  Serious: Yes (Other)
  Sender: FDA-Public Use
  Company Number: US-GLAXOSMITHKLINE-A0528796A

PATIENT
  Age: 44 Year
  Sex: Female

DRUGS (3)
  1. LAMICTAL [Suspect]
     Indication: BIPOLAR DISORDER
     Route: 048
     Dates: start: 20030513
  2. KLONOPIN [Concomitant]
  3. ZYPREXA [Concomitant]

REACTIONS (5)
  - AFFECT LABILITY [None]
  - ANGER [None]
  - DRUG EFFECT DECREASED [None]
  - PARANOIA [None]
  - PSYCHOTIC DISORDER [None]
